FAERS Safety Report 7943482-0 (Version None)
Quarter: 2011Q4

REPORT INFORMATION
  Report Type: 
  Country: None (occurrence: None)
  Receive Date: 20111128
  Receipt Date: 20111121
  Transmission Date: 20120403
  Serious: Yes (Death, Hospitalization)
  Sender: FDA-Public Use
  Company Number: PHHO2010IN02467

PATIENT
  Sex: Male
  Weight: 52 kg

DRUGS (2)
  1. QAB149 [Suspect]
     Indication: CHRONIC OBSTRUCTIVE PULMONARY DISEASE
     Dosage: DOUBLE BLINDED
     Dates: start: 20090909, end: 20100616
  2. ALBUTEROL SULFATE AUTOHALER [Concomitant]
     Indication: CHRONIC OBSTRUCTIVE PULMONARY DISEASE

REACTIONS (14)
  - ABDOMINAL DISTENSION [None]
  - ABDOMINAL DISCOMFORT [None]
  - PRODUCTIVE COUGH [None]
  - DRUG INEFFECTIVE [None]
  - CARDIO-RESPIRATORY ARREST [None]
  - CHRONIC OBSTRUCTIVE PULMONARY DISEASE [None]
  - DYSPNOEA [None]
  - ENDOTRACHEAL INTUBATION [None]
  - RESPIRATORY DISTRESS [None]
  - COUGH [None]
  - RESTLESSNESS [None]
  - BRADYCARDIA [None]
  - LOWER RESPIRATORY TRACT INFECTION [None]
  - BRONCHIECTASIS [None]
